FAERS Safety Report 7630241-1 (Version None)
Quarter: 2011Q3

REPORT INFORMATION
  Report Type: 
  Country: None (occurrence: None)
  Receive Date: 20110722
  Receipt Date: 20110719
  Transmission Date: 20111222
  Serious: Yes (Other)
  Sender: FDA-Public Use
  Company Number: US-PFIZER INC-2011143590

PATIENT
  Sex: Male

DRUGS (9)
  1. BENICAR [Concomitant]
     Dosage: 40 MG, 1X/DAY EVERY EVENING
  2. LOPERAMIDE HYDROCHLORIDE [Concomitant]
     Dosage: 4 MG, 2X/DAY
  3. CLONAZEPAM [Concomitant]
     Dosage: 1 MG, 2X/DAY
  4. NEXIUM [Concomitant]
     Dosage: 40 MG, 1X/DAY
  5. HYDROMORPHONE [Concomitant]
     Dosage: 2 MG, 2X/DAY
  6. PLAQUENIL [Concomitant]
     Dosage: 400 MG, 1X/DAY EVERY EVENING
  7. GEODON [Suspect]
     Indication: BIPOLAR I DISORDER
     Dosage: 20 MG, 2X/DAY
     Route: 048
     Dates: start: 20110518, end: 20110101
  8. ALLEGRA [Concomitant]
     Dosage: 180 MG, 1X/DAY
  9. ESTER-C [Concomitant]
     Dosage: 400-600MG BID

REACTIONS (8)
  - FEELING ABNORMAL [None]
  - PYREXIA [None]
  - VISUAL IMPAIRMENT [None]
  - COORDINATION ABNORMAL [None]
  - HYPERHIDROSIS [None]
  - BLOOD PRESSURE DECREASED [None]
  - GAIT DISTURBANCE [None]
  - TREMOR [None]
